FAERS Safety Report 13312984 (Version 1)
Quarter: 2017Q1

REPORT INFORMATION
  Report Type: Spontaneous
  Country: US (occurrence: US)
  Receive Date: 20170309
  Receipt Date: 20170309
  Transmission Date: 20170428
  Serious: Yes (Hospitalization)
  Sender: FDA-Public Use
  Company Number: US-G+W LABS-GW2017US000088

PATIENT

DRUGS (4)
  1. MESALAMINE. [Suspect]
     Active Substance: MESALAMINE
     Dosage: 4 G PER DAY (SUPPOSITORY)
     Route: 054
  2. MESALAMINE. [Suspect]
     Active Substance: MESALAMINE
     Indication: COLITIS ULCERATIVE
     Dosage: UNK (SUPPOSITORY)
     Route: 054
  3. MESALAMINE. [Suspect]
     Active Substance: MESALAMINE
     Dosage: 4.8 G PER DAY
     Route: 048
  4. MESALAMINE. [Suspect]
     Active Substance: MESALAMINE
     Dosage: UNK (ONE ENEMA)
     Route: 054

REACTIONS (6)
  - Acute generalised exanthematous pustulosis [Recovered/Resolved]
  - Dermatitis contact [Unknown]
  - Hepatic enzyme increased [Recovered/Resolved]
  - Mouth ulceration [Recovered/Resolved]
  - Leukocytosis [Recovered/Resolved]
  - Renal failure [Recovered/Resolved]
